FAERS Safety Report 5045568-X (Version None)
Quarter: 2006Q2

REPORT INFORMATION
  Report Type: 
  Country: None (occurrence: None)
  Receive Date: 20060601
  Receipt Date: 20060202
  Transmission Date: 20061013
  Serious: No
  Sender: FDA-Public Use
  Company Number: 2006-BP-01371BP

PATIENT
  Sex: 0

DRUGS (2)
  1. SPIRIVA [Suspect]
     Dosage: (18 MCG), IH
     Route: 055
  2. SEVERAL MEDS [Concomitant]

REACTIONS (1)
  - FLUSHING [None]
